FAERS Safety Report 8122885-8 (Version None)
Quarter: 2012Q1

REPORT INFORMATION
  Report Type: 
  Country: None (occurrence: None)
  Receive Date: 20120208
  Receipt Date: 20120131
  Transmission Date: 20120608
  Serious: Yes (Other)
  Sender: FDA-Public Use
  Company Number: US-ABBOTT-11P-163-0848057-00

PATIENT
  Sex: Female
  Weight: 102.15 kg

DRUGS (16)
  1. ASPIRIN [Concomitant]
     Indication: CARDIOVASCULAR EVENT PROPHYLAXIS
     Route: 048
  2. ASCORBIC ACID [Concomitant]
     Indication: VITAMIN SUPPLEMENTATION
     Route: 048
  3. AMLODIPINE [Concomitant]
     Indication: BLOOD PRESSURE
     Route: 048
  4. MIRAPEX [Concomitant]
     Indication: RESTLESS LEGS SYNDROME
     Route: 048
  5. HYDROCHLOROTHIAZIDE [Concomitant]
     Indication: BLOOD PRESSURE
     Route: 048
  6. CYMBALTA [Concomitant]
     Indication: NEUROPATHY PERIPHERAL
     Route: 048
  7. MULTI-VITAMIN [Concomitant]
     Indication: SUPPLEMENTATION THERAPY
     Route: 048
  8. ALPHA LIPOIC ACID [Concomitant]
     Indication: NEUROPATHY PERIPHERAL
     Route: 048
  9. COD LIVER OIL [Concomitant]
     Indication: VITAMIN SUPPLEMENTATION
     Route: 048
  10. ATORVASTATIN [Concomitant]
     Indication: BLOOD CHOLESTEROL
     Route: 048
  11. VITAMIN D [Concomitant]
     Indication: PRODUCT USED FOR UNKNOWN INDICATION
     Route: 048
  12. HUMIRA [Suspect]
     Indication: PSORIASIS
     Dates: start: 20090101, end: 20100201
  13. AMBIEN [Concomitant]
     Indication: INSOMNIA
     Dosage: 5 MG QPM
     Route: 048
  14. CALCIUM [Concomitant]
     Indication: OSTEOPENIA
     Route: 048
  15. FOLIC ACID [Concomitant]
     Indication: PRODUCT USED FOR UNKNOWN INDICATION
     Route: 048
  16. METHOTREXATE [Concomitant]
     Indication: PSORIASIS

REACTIONS (12)
  - BLOOD VISCOSITY INCREASED [None]
  - PSORIASIS [None]
  - IRRITABLE BOWEL SYNDROME [None]
  - SINUS DISORDER [None]
  - PARANASAL SINUS HYPERSECRETION [None]
  - BONE PAIN [None]
  - ARTHRALGIA [None]
  - COUGH [None]
  - OSTEOARTHRITIS [None]
  - INJECTION SITE PAIN [None]
  - OSTEOPENIA [None]
  - KNEE ARTHROPLASTY [None]
